FAERS Safety Report 4369405-1 (Version None)
Quarter: 2004Q2

REPORT INFORMATION
  Report Type: 
  Country: None (occurrence: None)
  Receive Date: 20040528
  Receipt Date: 20040312
  Transmission Date: 20050107
  Serious: No
  Sender: FDA-Public Use
  Company Number: 200402298

PATIENT
  Age: 35 Year
  Sex: Male

DRUGS (1)
  1. BOTOX [Suspect]
     Indication: MUSCLE SPASTICITY
     Dosage: 700 UNITS ONCE IM
     Route: 030
     Dates: start: 20040205, end: 20040205

REACTIONS (6)
  - ASTHENIA [None]
  - CLONUS [None]
  - MUSCLE SPASMS [None]
  - MUSCLE SPASTICITY [None]
  - NERVE ROOT LESION [None]
  - POST PROCEDURAL COMPLICATION [None]
